FAERS Safety Report 5092246-7 (Version None)
Quarter: 2006Q3

REPORT INFORMATION
  Report Type: 
  Country: None (occurrence: None)
  Receive Date: 20060828
  Receipt Date: 20060828
  Transmission Date: 20061208
  Serious: Yes (Life-Threatening, Other)
  Sender: FDA-Public Use
  Company Number: None

PATIENT
  Age: 68 Year
  Sex: Male
  Weight: 80.7403 kg

DRUGS (3)
  1. PREDISONE [Suspect]
     Indication: COUGH
     Dosage: 3 PER DAY 3 PER DAY PO
     Route: 048
     Dates: start: 20060715, end: 20060716
  2. PREDISONE [Suspect]
     Indication: COUGH
     Dosage: 3 PER DAY 3 PER DAY PO
     Route: 048
     Dates: start: 20060716, end: 20060716
  3. PREDISONE [Suspect]

REACTIONS (4)
  - DRUG HYPERSENSITIVITY [None]
  - DRUG INEFFECTIVE [None]
  - FOOD ALLERGY [None]
  - ORAL MUCOSAL BLISTERING [None]
